FAERS Safety Report 23105490 (Version 1)
Quarter: 2023Q4

REPORT INFORMATION
  Report Type: Spontaneous
  Country: US (occurrence: None)
  Receive Date: 20231023
  Receipt Date: 20231023
  Transmission Date: 20240110
  Serious: Yes (Death)
  Sender: FDA-Public Use
  Company Number: None

PATIENT
  Sex: Female

DRUGS (13)
  1. ZARXIO [Suspect]
     Active Substance: FILGRASTIM-SNDZ
     Indication: Breast cancer female
     Dosage: OTHER STRENGTH : 300MCG/0.5ML;?OTHER QUANTITY : 300MCG/0.5ML;?
  2. CAPECITABINE [Concomitant]
  3. DEXAMETHASONE [Concomitant]
     Active Substance: DEXAMETHASONE
  4. DIAZEPAM [Concomitant]
     Active Substance: DIAZEPAM
  5. FOLIC ACID [Concomitant]
     Active Substance: FOLIC ACID
  6. LIDO/PRILOCN CRE [Concomitant]
  7. LORAZEPAM [Concomitant]
     Active Substance: LORAZEPAM
  8. METHOTREXATE [Concomitant]
     Active Substance: METHOTREXATE
  9. ONDANSETRON [Concomitant]
     Active Substance: ONDANSETRON
  10. OXYCODONE [Concomitant]
     Active Substance: OXYCODONE
  11. PREDNISONE [Concomitant]
     Active Substance: PREDNISONE
  12. PREDNISONE [Concomitant]
     Active Substance: PREDNISONE
  13. PROCHLORPER [Concomitant]

REACTIONS (1)
  - Death [None]
